FAERS Safety Report 8959039 (Version 2)
Quarter: 2013Q1

REPORT INFORMATION
  Report Type: Spontaneous
  Country: US (occurrence: US)
  Receive Date: 20121212
  Receipt Date: 20130122
  Transmission Date: 20140127
  Serious: Yes (Other)
  Sender: FDA-Public Use
  Company Number: US-MERCK-1212USA003126

PATIENT
  Sex: Male

DRUGS (3)
  1. PEG-INTRON [Suspect]
     Indication: HEPATITIS C
     Dosage: UNK
     Dates: start: 20121030
  2. RIBAVIRIN [Suspect]
     Indication: HEPATITIS C
     Dosage: UNK
     Route: 048
     Dates: start: 20121030
  3. TELAPREVIR [Suspect]
     Indication: HEPATITIS C
     Dosage: UNK
     Dates: start: 20121030

REACTIONS (9)
  - Emphysema [Unknown]
  - Dyspnoea [Unknown]
  - White blood cell count decreased [Unknown]
  - Pyrexia [Unknown]
  - Dizziness [Unknown]
  - Dehydration [Unknown]
  - Asthenia [Unknown]
  - Influenza like illness [Unknown]
  - White blood cell count decreased [Unknown]
